FAERS Safety Report 17853741 (Version 2)
Quarter: 2020Q4

REPORT INFORMATION
  Report Type: Spontaneous
  Country: JP (occurrence: JP)
  Receive Date: 20200603
  Receipt Date: 20201026
  Transmission Date: 20210113
  Serious: Yes (Other)
  Sender: FDA-Public Use
  Company Number: JP-AMGEN-JPNSP2020085579

PATIENT
  Age: 32 Year
  Sex: Male
  Weight: 68.1 kg

DRUGS (14)
  1. NESP [Concomitant]
     Active Substance: DARBEPOETIN ALFA
     Dosage: 20 UG, QW
     Route: 065
     Dates: start: 20180914
  2. OXAROL [Concomitant]
     Active Substance: MAXACALCITOL
     Dosage: 7.5 UG, Q84H
     Route: 065
     Dates: start: 20180608
  3. P-TOL [SUCROFERRIC OXYHYDROXIDE] [Concomitant]
     Active Substance: SUCROFERRIC OXYHYDROXIDE
     Dosage: 1500 MG, EVERYDAY
     Route: 065
     Dates: start: 20180823, end: 20181116
  4. P-TOL [SUCROFERRIC OXYHYDROXIDE] [Concomitant]
     Active Substance: SUCROFERRIC OXYHYDROXIDE
     Dosage: 750 MG, EVERYDAY
     Route: 065
     Dates: start: 20181117
  5. KIKLIN [Concomitant]
     Active Substance: BIXALOMER
     Dosage: 2250 MG, EVERYDAY
     Route: 048
  6. PARSABIV [Suspect]
     Active Substance: ETELCALCETIDE HYDROCHLORIDE
     Indication: HYPERPARATHYROIDISM SECONDARY
     Dosage: 5 MG, Q56H
     Route: 010
     Dates: start: 20180727
  7. OXAROL [Concomitant]
     Active Substance: MAXACALCITOL
     Dosage: 10 UG, QW
     Route: 065
     Dates: start: 20180227, end: 20180523
  8. OXAROL [Concomitant]
     Active Substance: MAXACALCITOL
     Dosage: 7.5 UG, Q56H
     Route: 065
     Dates: start: 20180525, end: 20180606
  9. NESP [Concomitant]
     Active Substance: DARBEPOETIN ALFA
     Dosage: 20 UG, QW
     Route: 065
     Dates: start: 20180713, end: 20180803
  10. OXAROL [Concomitant]
     Active Substance: MAXACALCITOL
     Dosage: 7.5 UG, Q84H
     Route: 065
     Dates: start: 20180227, end: 20180523
  11. P-TOL [SUCROFERRIC OXYHYDROXIDE] [Concomitant]
     Active Substance: SUCROFERRIC OXYHYDROXIDE
     Dosage: 750 MG, EVERYDAY
     Route: 065
     Dates: end: 20180822
  12. NESP [Concomitant]
     Active Substance: DARBEPOETIN ALFA
     Dosage: 30 UG, QW
     Route: 065
     Dates: end: 20180706
  13. NESP [Concomitant]
     Active Substance: DARBEPOETIN ALFA
     Dosage: 15 UG, QW
     Route: 065
     Dates: start: 20180810, end: 20180907
  14. OXAROL [Concomitant]
     Active Substance: MAXACALCITOL
     Dosage: 5 UG, QW
     Route: 065
     Dates: start: 20180608

REACTIONS (1)
  - Shunt occlusion [Recovered/Resolved]

NARRATIVE: CASE EVENT DATE: 20190719
